FAERS Safety Report 5769647-4 (Version None)
Quarter: 2008Q2

REPORT INFORMATION
  Report Type: 
  Country: None (occurrence: None)
  Receive Date: 20080612
  Receipt Date: 20080408
  Transmission Date: 20081010
  Serious: No
  Sender: FDA-Public Use
  Company Number: US-ABBOTT-08P-163-0445947-00

PATIENT
  Sex: Male
  Weight: 89.892 kg

DRUGS (10)
  1. HUMIRA [Suspect]
     Indication: RHEUMATOID ARTHRITIS
     Route: 058
     Dates: start: 20080201
  2. METHOTREXATE [Concomitant]
     Indication: RHEUMATOID ARTHRITIS
     Route: 050
  3. PREDNISONE TAB [Concomitant]
     Indication: RHEUMATOID ARTHRITIS
     Route: 048
  4. AMITRIPTYLINE HYDROCHLORIDE [Concomitant]
     Indication: DEPRESSION
     Route: 048
  5. DULOXETINE HYDROCHLORIDE [Concomitant]
     Indication: DEPRESSION
     Route: 048
  6. ASPIRIN [Concomitant]
     Indication: CARDIOVASCULAR EVENT PROPHYLAXIS
     Route: 048
  7. PANTOPRAZOLE [Concomitant]
     Indication: GASTROOESOPHAGEAL REFLUX DISEASE
     Route: 048
  8. METOPROLOL [Concomitant]
     Indication: HYPERTENSION
     Route: 048
  9. HYDROCODONE [Concomitant]
     Indication: RHEUMATOID ARTHRITIS
     Route: 048
  10. OXYCODONE HCL [Concomitant]
     Indication: RHEUMATOID ARTHRITIS
     Route: 048

REACTIONS (1)
  - UNDERDOSE [None]
